FAERS Safety Report 7183990-6 (Version None)
Quarter: 2010Q4

REPORT INFORMATION
  Report Type: 
  Country: None (occurrence: None)
  Receive Date: 20101222
  Receipt Date: 20101209
  Transmission Date: 20110411
  Serious: Yes (Death, Hospitalization)
  Sender: FDA-Public Use
  Company Number: BE-PFIZER INC-2010147615

PATIENT
  Age: 61 Year
  Sex: Male
  Weight: 97 kg

DRUGS (10)
  1. SUNITINIB MALATE [Suspect]
     Indication: PROSTATE CANCER
     Dosage: 37.5 MG, 1X/DAY
     Route: 048
     Dates: start: 20100727, end: 20101115
  2. PREDNISONE [Suspect]
     Indication: PROSTATE CANCER
     Dosage: 5 MG, 2X/DAY
     Route: 048
     Dates: start: 20100727, end: 20101207
  3. TAMSULOSIN [Concomitant]
     Dosage: 0.4 MG, 1X/DAY
     Route: 048
  4. NEBIVOLOL [Concomitant]
     Indication: HYPERTENSION
     Dosage: 5 MG, 1X/DAY
     Route: 048
  5. PERINDOPRIL [Concomitant]
     Indication: HYPERTENSION
     Dosage: 5 MG, 1X/DAY
     Route: 048
  6. RABEPRAZOLE [Concomitant]
     Dosage: 10 MG, 1X/DAY
     Route: 048
  7. METFORMIN [Concomitant]
     Indication: DIABETES MELLITUS
     Dosage: 850 MG, 1X/DAY
     Route: 048
  8. GLIQUIDONE [Concomitant]
     Indication: DIABETES MELLITUS
     Dosage: 15 MG, 1X/DAY
     Route: 048
  9. ENOXAPARIN SODIUM [Concomitant]
     Dosage: 20 MG, 1X/DAY
     Route: 058
     Dates: start: 20100411
  10. LASIX [Concomitant]
     Dosage: 20 MG, 2X/DAY
     Route: 042
     Dates: start: 20101111

REACTIONS (1)
  - NEPHROTIC SYNDROME [None]
